FAERS Safety Report 5414534-4 (Version None)
Quarter: 2007Q3

REPORT INFORMATION
  Report Type: 
  Country: None (occurrence: None)
  Receive Date: 20070731
  Receipt Date: 20070417
  Transmission Date: 20080115
  Serious: No
  Sender: FDA-Public Use
  Company Number: 2007PV027566

PATIENT
  Age: 54 Year
  Sex: Male
  Weight: 108.9 kg

DRUGS (8)
  1. EXENATIDE [Suspect]
     Indication: TYPE 2 DIABETES MELLITUS
     Dosage: 10 UG, 2/D, SQ   5 UG, 2/D, SQ   10 UG, 2/D, SQ   10 UG, 2/D, SQ
     Route: 058
     Dates: start: 20061001, end: 20061101
  2. EXENATIDE [Suspect]
     Indication: TYPE 2 DIABETES MELLITUS
     Dosage: 10 UG, 2/D, SQ   5 UG, 2/D, SQ   10 UG, 2/D, SQ   10 UG, 2/D, SQ
     Route: 058
     Dates: start: 20061201, end: 20061201
  3. EXENATIDE [Suspect]
     Indication: TYPE 2 DIABETES MELLITUS
     Dosage: 10 UG, 2/D, SQ   5 UG, 2/D, SQ   10 UG, 2/D, SQ   10 UG, 2/D, SQ
     Route: 058
     Dates: start: 20061101
  4. EXENATIDE [Suspect]
     Indication: TYPE 2 DIABETES MELLITUS
     Dosage: 10 UG, 2/D, SQ   5 UG, 2/D, SQ   10 UG, 2/D, SQ   10 UG, 2/D, SQ
     Route: 058
     Dates: start: 20061221
  5. GLYSET [Concomitant]
  6. HUMULIN 70/30 [Concomitant]
  7. ACTOSPLUS [Concomitant]
  8. ACTOS [Concomitant]

REACTIONS (5)
  - DECREASED APPETITE [None]
  - DRUG EFFECT DECREASED [None]
  - DYSGEUSIA [None]
  - WEIGHT DECREASED [None]
  - WEIGHT INCREASED [None]
